FAERS Safety Report 22759560 (Version 4)
Quarter: 2024Q2

REPORT INFORMATION
  Report Type: Spontaneous
  Country: AT (occurrence: AT)
  Receive Date: 20230728
  Receipt Date: 20240522
  Transmission Date: 20240717
  Serious: Yes (Hospitalization)
  Sender: FDA-Public Use
  Company Number: AT-JNJFOC-20230732047

PATIENT
  Age: 78 Year
  Sex: Male

DRUGS (5)
  1. LEUPROLIDE ACETATE [Suspect]
     Active Substance: ISOPROPYL ALCOHOL\LEUPROLIDE ACETATE
     Indication: Prostate cancer
     Route: 065
  2. LEUPROLIDE ACETATE [Suspect]
     Active Substance: ISOPROPYL ALCOHOL\LEUPROLIDE ACETATE
     Indication: Hormone-dependent prostate cancer
  3. ENCORAFENIB [Suspect]
     Active Substance: ENCORAFENIB
     Indication: Metastatic malignant melanoma
     Dosage: 450 MILLIGRAM, QD
     Route: 065
     Dates: start: 20221203
  4. ERLEADA [Suspect]
     Active Substance: APALUTAMIDE
     Indication: Hormone-dependent prostate cancer
     Dosage: 240 MILLIGRAM, QD
     Route: 048
     Dates: start: 20230622, end: 20230708
  5. BINIMETINIB [Suspect]
     Active Substance: BINIMETINIB
     Indication: Metastatic malignant melanoma
     Dosage: 45 MILLIGRAM, Q12H
     Route: 065
     Dates: start: 20221203

REACTIONS (2)
  - Malignant neoplasm progression [Unknown]
  - Drug interaction [Unknown]
